FAERS Safety Report 19515811 (Version 1)
Quarter: 2021Q3

REPORT INFORMATION
  Report Type: Other
  Country: US (occurrence: US)
  Receive Date: 20210710
  Receipt Date: 20210710
  Transmission Date: 20211014
  Serious: Yes (Hospitalization)
  Sender: FDA-Public Use
  Company Number: US-ROCHE-2865867

PATIENT
  Sex: Female

DRUGS (1)
  1. ROZLYTREK [Suspect]
     Active Substance: ENTRECTINIB
     Indication: NEOPLASM MALIGNANT
     Dosage: 2 CAPSULES OF MOUTH DAILY
     Route: 048

REACTIONS (1)
  - Thrombosis [Unknown]
